FAERS Safety Report 17044347 (Version 3)
Quarter: 2020Q1

REPORT INFORMATION
  Report Type: Report from Study
  Country: US (occurrence: US)
  Receive Date: 20191118
  Receipt Date: 20200207
  Transmission Date: 20200409
  Serious: Yes (Other)
  Sender: FDA-Public Use
  Company Number: US-PFIZER INC-2019414893

PATIENT
  Age: 70 Year
  Sex: Female

DRUGS (2)
  1. IBRANCE [Suspect]
     Active Substance: PALBOCICLIB
     Dosage: 100 MG, CYCLIC, (3 WEEKS ON AND 1 WEEK OFF)
     Route: 048
     Dates: start: 202001
  2. IBRANCE [Suspect]
     Active Substance: PALBOCICLIB
     Indication: BREAST CANCER FEMALE
     Dosage: 125 MG, CYCLIC (ONCE A DAY, 21 DAYS ON/7 DAYS OFF)
     Route: 048
     Dates: start: 20190805, end: 201912

REACTIONS (6)
  - White blood cell count decreased [Recovering/Resolving]
  - Urinary tract infection [Unknown]
  - Arthralgia [Recovering/Resolving]
  - Fatigue [Recovering/Resolving]
  - Hot flush [Unknown]
  - Madarosis [Unknown]

NARRATIVE: CASE EVENT DATE: 2019
